FAERS Safety Report 8277693-4 (Version None)
Quarter: 2012Q2

REPORT INFORMATION
  Report Type: 
  Country: None (occurrence: None)
  Receive Date: 20120412
  Receipt Date: 20120411
  Transmission Date: 20120825
  Serious: Yes (Other)
  Sender: FDA-Public Use
  Company Number: US-PFIZER INC-2012090811

PATIENT
  Sex: Female

DRUGS (3)
  1. TRAVATAN [Concomitant]
     Indication: GLAUCOMA
     Dosage: 1 GTT, DAILY
     Route: 047
  2. BETIMOL [Concomitant]
     Indication: GLAUCOMA
     Dosage: 1 GTT, 2X/DAY
  3. LIPITOR [Suspect]
     Indication: BLOOD CHOLESTEROL INCREASED
     Dosage: 20 MG, DAILY
     Route: 048
     Dates: start: 20090901

REACTIONS (2)
  - RETINAL DETACHMENT [None]
  - CATARACT [None]
